FAERS Safety Report 5883895-4 (Version None)
Quarter: 2008Q3

REPORT INFORMATION
  Report Type: 
  Country: None (occurrence: None)
  Receive Date: 20080915
  Receipt Date: 20080901
  Transmission Date: 20090109
  Serious: Yes (Life-Threatening, Hospitalization)
  Sender: FDA-Public Use
  Company Number: GB-ELI_LILLY_AND_COMPANY-GB200804004778

PATIENT
  Sex: Male
  Weight: 98 kg

DRUGS (10)
  1. ALIMTA [Suspect]
     Indication: MESOTHELIOMA
     Dosage: 1000 MG, UNKNOWN
     Route: 042
     Dates: start: 20080229
  2. ALIMTA [Suspect]
     Dosage: UNK, UNKNOWN
     Route: 042
     Dates: start: 20080320
  3. CISPLATIN [Concomitant]
     Indication: MESOTHELIOMA
     Dosage: 75 MG, UNKNOWN
     Route: 065
  4. VITAMIN B-12 [Concomitant]
     Dosage: UNK, UNKNOWN
     Route: 065
  5. FOLIC ACID [Concomitant]
     Dosage: 40 MG, UNKNOWN
     Route: 048
     Dates: start: 20080201
  6. LANSOPRAZOLE [Concomitant]
     Dosage: 30 MG, UNKNOWN
     Route: 048
  7. SENNA [Concomitant]
     Dosage: UNK, UNKNOWN
     Route: 048
  8. SELENIUM-ACE [Concomitant]
     Dosage: UNK, UNKNOWN
     Route: 048
  9. DEXAMETHASONE [Concomitant]
     Dosage: UNK, UNKNOWN
  10. GRANISETRON [Concomitant]
     Dosage: UNK, UNKNOWN

REACTIONS (1)
  - CEREBROVASCULAR ACCIDENT [None]
